FAERS Safety Report 25289811 (Version 1)
Quarter: 2025Q2

REPORT INFORMATION
  Report Type: Report from Study
  Country: DE (occurrence: DE)
  Receive Date: 20250509
  Receipt Date: 20250509
  Transmission Date: 20250716
  Serious: Yes (Other)
  Sender: SANDOZ
  Company Number: DE-SANDOZ-SDZ2025DE029948

PATIENT
  Sex: Female
  Weight: 49.5 kg

DRUGS (2)
  1. SOMATROPIN [Suspect]
     Active Substance: SOMATROPIN
     Indication: Hypopituitarism
     Route: 058
     Dates: start: 20240716, end: 20250128
  2. SOMATROPIN [Suspect]
     Active Substance: SOMATROPIN
     Indication: Blood antidiuretic hormone

REACTIONS (2)
  - Syncope [Recovered/Resolved]
  - Infection [Recovered/Resolved]

NARRATIVE: CASE EVENT DATE: 20250120
